FAERS Safety Report 9879735 (Version 2)
Quarter: 2015Q1

REPORT INFORMATION
  Report Type: Report from Study
  Country: BR (occurrence: BR)
  Receive Date: 20140206
  Receipt Date: 20150122
  Transmission Date: 20150721
  Serious: Yes (Death)
  Sender: FDA-Public Use
  Company Number: PHHY2014BR014912

PATIENT
  Sex: Female
  Weight: 57 kg

DRUGS (2)
  1. EXELON PATCH [Suspect]
     Active Substance: RIVASTIGMINE
     Indication: DEMENTIA ALZHEIMER^S TYPE
     Dosage: 1 DF, DAILY
     Route: 062
     Dates: start: 2008
  2. EXELON [Suspect]
     Active Substance: RIVASTIGMINE TARTRATE
     Indication: DEMENTIA ALZHEIMER^S TYPE
     Dosage: 2 DF, DAILY
     Route: 048
     Dates: start: 2003

REACTIONS (6)
  - Dementia Alzheimer^s type [Fatal]
  - Cardiac disorder [Unknown]
  - Respiratory disorder [Fatal]
  - Cardiovascular disorder [Unknown]
  - Memory impairment [Fatal]
  - Agitation [Unknown]
